FAERS Safety Report 15133299 (Version 1)
Quarter: 2018Q3

REPORT INFORMATION
  Report Type: Spontaneous
  Country: US (occurrence: US)
  Receive Date: 20180712
  Receipt Date: 20180712
  Transmission Date: 20181010
  Serious: Yes (Hospitalization)
  Sender: FDA-Public Use
  Company Number: US-CIPLA LTD.-2017US30259

PATIENT

DRUGS (4)
  1. RISPERIDONE. [Suspect]
     Active Substance: RISPERIDONE
     Dosage: 2 MG, AT BED TIME
     Route: 065
  2. CITALOPRAM [Suspect]
     Active Substance: CITALOPRAM HYDROBROMIDE
     Indication: BIPOLAR DISORDER
     Dosage: 20 MG, DAILY
     Route: 065
  3. RISPERIDONE. [Suspect]
     Active Substance: RISPERIDONE
     Indication: BIPOLAR DISORDER
     Dosage: 50 MG, LONG ACTING INJECTION, EVERY 2 WEEKS
     Route: 030
  4. BENZTROPINE. [Suspect]
     Active Substance: BENZTROPINE
     Indication: BIPOLAR DISORDER
     Dosage: 0.5 MG, DAILY
     Route: 065

REACTIONS (3)
  - Foetal growth restriction [Unknown]
  - Exposure during pregnancy [Unknown]
  - Placental insufficiency [Unknown]
